FAERS Safety Report 6979435-9 (Version None)
Quarter: 2010Q3

REPORT INFORMATION
  Report Type: 
  Country: None (occurrence: None)
  Receive Date: 20100913
  Receipt Date: 20100903
  Transmission Date: 20110219
  Serious: Yes (Other)
  Sender: FDA-Public Use
  Company Number: JP-ELI_LILLY_AND_COMPANY-JP201009001216

PATIENT
  Age: 64 Year
  Sex: Female

DRUGS (2)
  1. GEMZAR [Suspect]
     Indication: OVARIAN CANCER
     Dosage: UNK, OTHER
     Route: 042
  2. TAXOTERE [Concomitant]
     Indication: OVARIAN CANCER
     Dosage: UNK, OTHER
     Route: 042

REACTIONS (3)
  - ILEUS [None]
  - MALIGNANT ASCITES [None]
  - OFF LABEL USE [None]
